FAERS Safety Report 5407761-3 (Version None)
Quarter: 2007Q3

REPORT INFORMATION
  Report Type: 
  Country: None (occurrence: None)
  Receive Date: 20070807
  Receipt Date: 20070729
  Transmission Date: 20080115
  Serious: Yes (Hospitalization)
  Sender: FDA-Public Use
  Company Number: US-SHR-US-2007-028156

PATIENT
  Age: 60 Year
  Sex: Female

DRUGS (1)
  1. BETASERON [Suspect]
     Indication: RELAPSING-REMITTING MULTIPLE SCLEROSIS
     Dosage: 8 MIU, EVERY 2D
     Route: 058
     Dates: start: 20061210

REACTIONS (8)
  - DIARRHOEA [None]
  - DYSURIA [None]
  - GALLBLADDER OPERATION [None]
  - HYPERTENSION [None]
  - INJECTION SITE REACTION [None]
  - PAIN IN EXTREMITY [None]
  - PITTING OEDEMA [None]
  - VOMITING [None]
